FAERS Safety Report 10049785 (Version 1)
Quarter: 2014Q2

REPORT INFORMATION
  Report Type: Spontaneous
  Country: US (occurrence: MX)
  Receive Date: 20140401
  Receipt Date: 20140401
  Transmission Date: 20141212
  Serious: Yes (Other)
  Sender: FDA-Public Use
  Company Number: US-JNJCP-30000208310

PATIENT
  Age: 16 Year
  Sex: Male

DRUGS (1)
  1. NEUTROGENA PRODUCTS [Suspect]
     Indication: PROPHYLAXIS
     Route: 061

REACTIONS (3)
  - Melanocytic naevus [Not Recovered/Not Resolved]
  - Melanocytic naevus [Not Recovered/Not Resolved]
  - Skin cancer [Unknown]
